FAERS Safety Report 12366078 (Version 1)
Quarter: 2016Q2

REPORT INFORMATION
  Report Type: Report from Study
  Country: CA (occurrence: CA)
  Receive Date: 20160513
  Receipt Date: 20160513
  Transmission Date: 20160815
  Serious: Yes (Other)
  Sender: FDA-Public Use
  Company Number: CA-ROCHE-ITM201504IM013126

PATIENT
  Age: 57 Year
  Sex: Male
  Weight: 112.6 kg

DRUGS (20)
  1. LANSOPRAZOLE. [Concomitant]
     Active Substance: LANSOPRAZOLE
  2. PANTOPRAZOLE [Concomitant]
     Active Substance: PANTOPRAZOLE SODIUM
  3. QUETIAPINE. [Concomitant]
     Active Substance: QUETIAPINE
  4. FENOFIBRATE. [Concomitant]
     Active Substance: FENOFIBRATE
  5. ASA [Concomitant]
     Active Substance: ASPIRIN
     Route: 065
  6. LEVOTHYROXINE. [Concomitant]
     Active Substance: LEVOTHYROXINE
  7. ESBRIET [Suspect]
     Active Substance: PIRFENIDONE
     Dosage: 2403 MG
     Route: 048
  8. ISONIAZIDE [Concomitant]
     Active Substance: ISONIAZID
  9. OXYGEN. [Concomitant]
     Active Substance: OXYGEN
     Route: 065
  10. PREDNISONE. [Concomitant]
     Active Substance: PREDNISONE
     Dosage: FOR 5 DAYS
     Route: 065
  11. ZOPICLONE [Concomitant]
     Active Substance: ZOPICLONE
  12. PYRIDOXINE [Concomitant]
     Active Substance: PYRIDOXINE
  13. METFORMIN [Concomitant]
     Active Substance: METFORMIN HYDROCHLORIDE
  14. ELTROXIN [Concomitant]
     Active Substance: LEVOTHYROXINE
  15. ENOXAPARIN [Concomitant]
     Active Substance: ENOXAPARIN
  16. ESBRIET [Suspect]
     Active Substance: PIRFENIDONE
     Indication: IDIOPATHIC PULMONARY FIBROSIS
     Route: 048
     Dates: start: 20140514
  17. CLONAZEPAM. [Concomitant]
     Active Substance: CLONAZEPAM
  18. MORPHINE [Concomitant]
     Active Substance: MORPHINE
  19. METHOTRIMEPRAZINE [Concomitant]
     Active Substance: LEVOMEPROMAZINE
  20. MOXIFLOXACIN. [Concomitant]
     Active Substance: MOXIFLOXACIN

REACTIONS (1)
  - Idiopathic pulmonary fibrosis [Unknown]
